FAERS Safety Report 22315945 (Version 2)
Quarter: 2023Q2

REPORT INFORMATION
  Report Type: Spontaneous
  Country: US (occurrence: US)
  Receive Date: 20230512
  Receipt Date: 20230516
  Transmission Date: 20230721
  Serious: Yes (Death, Hospitalization, Other)
  Sender: FDA-Public Use
  Company Number: US-SEATTLE GENETICS-2023SGN04635

PATIENT
  Age: 61 Year
  Sex: Female

DRUGS (1)
  1. ADCETRIS [Suspect]
     Active Substance: BRENTUXIMAB VEDOTIN
     Indication: Hodgkin^s disease
     Dosage: 180 MG
     Route: 065

REACTIONS (5)
  - Hepatic steatosis [Fatal]
  - Pancreatic steatosis [Fatal]
  - Renal disorder [Fatal]
  - Acute kidney injury [Unknown]
  - Lipiduria [Unknown]
